FAERS Safety Report 15975698 (Version 2)
Quarter: 2019Q1

REPORT INFORMATION
  Report Type: Report from Study
  Country: US (occurrence: US)
  Receive Date: 20190218
  Receipt Date: 20190304
  Transmission Date: 20190418
  Serious: Yes (Hospitalization)
  Sender: FDA-Public Use
  Company Number: US-ROCHE-2262096

PATIENT
  Sex: Female

DRUGS (3)
  1. LINZESS [Concomitant]
     Active Substance: LINACLOTIDE
     Route: 065
     Dates: start: 201901
  2. ESBRIET [Suspect]
     Active Substance: PIRFENIDONE
     Indication: IDIOPATHIC PULMONARY FIBROSIS
     Dosage: 2 PILLS 3X A DAY
     Route: 048
     Dates: start: 20190123
  3. MIRALAX [Concomitant]
     Active Substance: POLYETHYLENE GLYCOL 3350
     Route: 065
     Dates: start: 201901

REACTIONS (11)
  - Urinary tract infection [Unknown]
  - Decreased appetite [Unknown]
  - Nerve injury [Recovered/Resolved]
  - Diarrhoea [Recovered/Resolved]
  - Malaise [Recovered/Resolved]
  - Blood potassium decreased [Unknown]
  - Nausea [Recovered/Resolved]
  - Confusional state [Not Recovered/Not Resolved]
  - Skin fissures [Recovered/Resolved]
  - Dehydration [Unknown]
  - Muscular weakness [Not Recovered/Not Resolved]
